FAERS Safety Report 15060980 (Version 1)
Quarter: 2018Q2

REPORT INFORMATION
  Report Type: Spontaneous
  Country: US (occurrence: US)
  Receive Date: 20180625
  Receipt Date: 20180625
  Transmission Date: 20180711
  Serious: Yes (Hospitalization)
  Sender: FDA-Public Use
  Company Number: US-ROCHE-2018137

PATIENT
  Age: 36 Year
  Sex: Female
  Weight: 74.91 kg

DRUGS (7)
  1. CLONAZEPAM (TEVA PHARM) [Suspect]
     Active Substance: CLONAZEPAM
     Indication: OBSESSIVE-COMPULSIVE DISORDER
     Route: 065
  2. KLONOPIN [Suspect]
     Active Substance: CLONAZEPAM
     Route: 065
  3. XANAX [Concomitant]
     Active Substance: ALPRAZOLAM
     Route: 065
     Dates: start: 2002, end: 2004
  4. KLONOPIN [Suspect]
     Active Substance: CLONAZEPAM
     Indication: PRODUCT USED FOR UNKNOWN INDICATION
     Dosage: 1 DOSE
     Route: 065
     Dates: start: 2016, end: 2016
  5. LIBRIUM [Concomitant]
     Active Substance: CHLORDIAZEPOXIDE HYDROCHLORIDE
  6. CLONAZEPAM (TEVA PHARM) [Suspect]
     Active Substance: CLONAZEPAM
     Route: 065
  7. CLONAZEPAM (TEVA PHARM) [Suspect]
     Active Substance: CLONAZEPAM
     Indication: ANXIETY
     Route: 065
     Dates: start: 200401

REACTIONS (39)
  - Fatigue [Recovering/Resolving]
  - Formication [Recovering/Resolving]
  - Anger [Unknown]
  - Nightmare [Unknown]
  - Feeling of despair [Not Recovered/Not Resolved]
  - Anxiety [Unknown]
  - Drug withdrawal syndrome [Recovered/Resolved]
  - Gait disturbance [Recovering/Resolving]
  - Suicidal ideation [Recovered/Resolved]
  - Drug ineffective [Unknown]
  - Suicidal ideation [Recovered/Resolved]
  - Chest pain [Unknown]
  - Salivary hypersecretion [Unknown]
  - Hair texture abnormal [Unknown]
  - Bedridden [Recovering/Resolving]
  - Pain [Unknown]
  - Paranoia [Unknown]
  - Dependence [Unknown]
  - Arthralgia [Recovering/Resolving]
  - Nervousness [Unknown]
  - Stress [Not Recovered/Not Resolved]
  - Irritability [Unknown]
  - Drug abuse [Unknown]
  - Fear [Unknown]
  - Pain in extremity [Unknown]
  - Depression [Unknown]
  - Depersonalisation/derealisation disorder [Unknown]
  - Balance disorder [Recovering/Resolving]
  - Speech disorder [Unknown]
  - Depression [Recovered/Resolved]
  - Memory impairment [Unknown]
  - Feeling abnormal [Not Recovered/Not Resolved]
  - Alopecia [Unknown]
  - Insomnia [Not Recovered/Not Resolved]
  - Diarrhoea [Unknown]
  - Foot fracture [Unknown]
  - Fall [Unknown]
  - Skin exfoliation [Unknown]
  - Weight increased [Unknown]

NARRATIVE: CASE EVENT DATE: 201506
